FAERS Safety Report 4375259-X (Version None)
Quarter: 2004Q2

REPORT INFORMATION
  Report Type: 
  Country: None (occurrence: None)
  Receive Date: 20040608
  Receipt Date: 20040428
  Transmission Date: 20050107
  Serious: Yes (Other)
  Sender: FDA-Public Use
  Company Number: 2004S1001232

PATIENT
  Age: 52 Year
  Sex: Female
  Weight: 90.7194 kg

DRUGS (3)
  1. LEVOTHYROXINE SODIUM [Suspect]
     Indication: AUTOIMMUNE THYROIDITIS
     Dosage: 0.1MG QD, ORAL
     Route: 048
     Dates: start: 20031201
  2. VALSARTAN [Concomitant]
  3. ASPIRIN [Concomitant]

REACTIONS (19)
  - BACK PAIN [None]
  - BLOOD GLUCOSE INCREASED [None]
  - BLOOD PRESSURE INCREASED [None]
  - BLOOD THYROID STIMULATING HORMONE INCREASED [None]
  - CARDIAC DISORDER [None]
  - CHEST PAIN [None]
  - CONSTIPATION [None]
  - DRUG INEFFECTIVE [None]
  - FAECALOMA [None]
  - FEELING ABNORMAL [None]
  - HEADACHE [None]
  - HEPATIC FAILURE [None]
  - INTESTINAL HYPOMOTILITY [None]
  - PAIN IN EXTREMITY [None]
  - PALPITATIONS [None]
  - PANCREATIC INSUFFICIENCY [None]
  - PHARMACEUTICAL PRODUCT COMPLAINT [None]
  - POLLAKIURIA [None]
  - RENAL FAILURE [None]
